FAERS Safety Report 7834737-9 (Version None)
Quarter: 2011Q4

REPORT INFORMATION
  Report Type: 
  Country: None (occurrence: None)
  Receive Date: 20111024
  Receipt Date: 20111013
  Transmission Date: 20120403
  Serious: Yes (Hospitalization)
  Sender: FDA-Public Use
  Company Number: US-JNJFOC-20111000346

PATIENT
  Sex: Female
  Weight: 42.7 kg

DRUGS (3)
  1. REMICADE [Suspect]
     Indication: INFLAMMATORY BOWEL DISEASE
     Route: 042
  2. BUDESONIDE [Concomitant]
  3. CIMZIA [Concomitant]
     Route: 050
     Dates: start: 20101011

REACTIONS (1)
  - SMALL INTESTINAL OBSTRUCTION [None]
